FAERS Safety Report 4542094-9 (Version None)
Quarter: 2004Q4

REPORT INFORMATION
  Report Type: 
  Country: None (occurrence: None)
  Receive Date: 20041227
  Receipt Date: 20041213
  Transmission Date: 20050328
  Serious: Yes (Hospitalization)
  Sender: FDA-Public Use
  Company Number: MK200412-0291-1

PATIENT
  Age: 31 Year
  Sex: Female

DRUGS (3)
  1. ANAFRANIL [Suspect]
     Dates: start: 20031101, end: 20040505
  2. TEGRETOL [Suspect]
     Dates: start: 20040405, end: 20040505
  3. CHLORPROMAZINE [Suspect]
     Dates: start: 20040321, end: 20040505

REACTIONS (1)
  - STEVENS-JOHNSON SYNDROME [None]
